FAERS Safety Report 21783511 (Version 2)
Quarter: 2023Q4

REPORT INFORMATION
  Report Type: Spontaneous
  Country: CA (occurrence: CA)
  Receive Date: 20221227
  Receipt Date: 20231005
  Transmission Date: 20240109
  Serious: Yes (Life-Threatening)
  Sender: FDA-Public Use
  Company Number: CA-PFIZER INC-PV202200127566

PATIENT
  Age: 29 Year
  Sex: Male

DRUGS (1)
  1. METHYLPREDNISOLONE SODIUM SUCCINATE [Suspect]
     Active Substance: METHYLPREDNISOLONE SODIUM SUCCINATE
     Indication: Warm autoimmune haemolytic anaemia
     Dosage: 500 MG, DAILY
     Route: 042

REACTIONS (1)
  - Drug ineffective for unapproved indication [Unknown]
